FAERS Safety Report 21793857 (Version 1)
Quarter: 2022Q4

REPORT INFORMATION
  Report Type: Spontaneous
  Country: US (occurrence: None)
  Receive Date: 20221229
  Receipt Date: 20221229
  Transmission Date: 20230112
  Serious: No
  Sender: FDA-Public Use
  Company Number: 2022A393105

PATIENT
  Age: 28910 Day
  Sex: Female
  Weight: 86.2 kg

DRUGS (2)
  1. SYMBICORT [Suspect]
     Active Substance: BUDESONIDE\FORMOTEROL FUMARATE DIHYDRATE
     Indication: Asthma
     Route: 055
     Dates: start: 20220912
  2. SYMBICORT [Suspect]
     Active Substance: BUDESONIDE\FORMOTEROL FUMARATE DIHYDRATE
     Indication: Bronchitis
     Route: 055
     Dates: start: 20220912

REACTIONS (8)
  - Dry mouth [Not Recovered/Not Resolved]
  - Confusional state [Unknown]
  - Wheezing [Unknown]
  - Productive cough [Unknown]
  - Product use issue [Unknown]
  - Intentional device use issue [Recovered/Resolved]
  - Wrong technique in device usage process [Unknown]
  - Product dose omission issue [Unknown]

NARRATIVE: CASE EVENT DATE: 20220912
